FAERS Safety Report 13087262 (Version 2)
Quarter: 2017Q1

REPORT INFORMATION
  Report Type: Spontaneous
  Country: GB (occurrence: GB)
  Receive Date: 20170105
  Receipt Date: 20170105
  Transmission Date: 20170428
  Serious: Yes (Hospitalization, Disabling)
  Sender: FDA-Public Use
  Company Number: GB-CIPLA LTD.-2016GB24394

PATIENT

DRUGS (2)
  1. LEVOTHYROXINE. [Suspect]
     Active Substance: LEVOTHYROXINE
     Indication: HYPOTHYROIDISM
     Dosage: 20 ?G, QD
     Route: 065
     Dates: start: 20161121
  2. TOPIRAMATE. [Suspect]
     Active Substance: TOPIRAMATE
     Dosage: 50 MG, QD
     Route: 048
     Dates: start: 20161121, end: 20161210

REACTIONS (4)
  - Polyuria [Recovering/Resolving]
  - Polydipsia [Recovering/Resolving]
  - Drug dispensing error [Unknown]
  - Abnormal behaviour [Recovering/Resolving]

NARRATIVE: CASE EVENT DATE: 201612
